FAERS Safety Report 5743562-4 (Version None)
Quarter: 2008Q2

REPORT INFORMATION
  Report Type: 
  Country: None (occurrence: None)
  Receive Date: 20080519
  Receipt Date: 20080519
  Transmission Date: 20081010
  Serious: No
  Sender: FDA-Public Use
  Company Number: None

PATIENT
  Sex: Female
  Weight: 97.9 kg

DRUGS (2)
  1. LOVENOX [Suspect]
     Indication: DEEP VEIN THROMBOSIS
     Dosage: 100 MG Q 12H SQ
     Route: 058
     Dates: start: 20080308, end: 20080312
  2. LOVENOX [Suspect]
     Indication: PULMONARY EMBOLISM
     Dosage: 100 MG Q 12H SQ
     Route: 058
     Dates: start: 20080308, end: 20080312

REACTIONS (1)
  - PRURITUS GENERALISED [None]
